FAERS Safety Report 6492462-3 (Version None)
Quarter: 2009Q4

REPORT INFORMATION
  Report Type: 
  Country: None (occurrence: None)
  Receive Date: 20091208
  Receipt Date: 20091124
  Transmission Date: 20100525
  Serious: Yes (Congenital Anomaly)
  Sender: FDA-Public Use
  Company Number: ADR52242009

PATIENT
  Sex: Male

DRUGS (2)
  1. TOPIRAMATE [Suspect]
     Dosage: MG/DAYS; TRANSPLACENTAL
     Route: 064
  2. VALPROIC ACID [Concomitant]

REACTIONS (3)
  - DRUG INTERACTION [None]
  - MATERNAL DRUGS AFFECTING FOETUS [None]
  - PYLORIC STENOSIS [None]
